FAERS Safety Report 8974173 (Version 1)
Quarter: 2012Q4

REPORT INFORMATION
  Report Type: Spontaneous
  Country: US (occurrence: None)
  Receive Date: 20121217
  Receipt Date: 20121217
  Transmission Date: 20130627
  Serious: Yes (Other)
  Sender: FDA-Public Use
  Company Number: None

PATIENT
  Age: 72 Year
  Sex: Female
  Weight: 97.52 kg

DRUGS (1)
  1. PRADAXA [Suspect]
     Indication: AFIB
     Dosage: 2 x daily, oral

REACTIONS (1)
  - Dyspepsia [None]
